FAERS Safety Report 19196942 (Version 1)
Quarter: 2021Q2

REPORT INFORMATION
  Report Type: Spontaneous
  Country: US (occurrence: US)
  Receive Date: 20210429
  Receipt Date: 20210429
  Transmission Date: 20210717
  Serious: No
  Sender: FDA-Public Use
  Company Number: US-TAKEDA-2021TUS026178

PATIENT
  Sex: Female
  Weight: 122 kg

DRUGS (1)
  1. ENTYVIO [Suspect]
     Active Substance: VEDOLIZUMAB
     Indication: CROHN^S DISEASE
     Dosage: 300 MILLIGRAM
     Route: 065
     Dates: start: 202101

REACTIONS (5)
  - Weight increased [Unknown]
  - Bradyphrenia [Unknown]
  - Fatigue [Unknown]
  - Fluid retention [Unknown]
  - Back pain [Unknown]
